FAERS Safety Report 4441547-1 (Version None)
Quarter: 2004Q3

REPORT INFORMATION
  Report Type: 
  Country: None (occurrence: None)
  Receive Date: 20040728
  Receipt Date: 20040223
  Transmission Date: 20050211
  Serious: No
  Sender: FDA-Public Use
  Company Number: US_0403101252

PATIENT
  Age: 38 Year
  Sex: Male
  Weight: 75 kg

DRUGS (2)
  1. STRATTERA [Suspect]
     Indication: ATTENTION DEFICIT/HYPERACTIVITY DISORDER
     Dosage: 90 MG DAY
     Dates: start: 20030801, end: 20040219
  2. CLARINEX [Concomitant]

REACTIONS (9)
  - CONSTIPATION [None]
  - DRUG EFFECT DECREASED [None]
  - DRY MOUTH [None]
  - DYSURIA [None]
  - GROIN PAIN [None]
  - HYPERHIDROSIS [None]
  - IRRITABILITY [None]
  - MEMORY IMPAIRMENT [None]
  - PAIN [None]
